FAERS Safety Report 7939009-X (Version None)
Quarter: 2011Q4

REPORT INFORMATION
  Report Type: 
  Country: None (occurrence: None)
  Receive Date: 20111124
  Receipt Date: 20111121
  Transmission Date: 20120403
  Serious: Yes (Congenital Anomaly, Other)
  Sender: FDA-Public Use
  Company Number: US-PFIZER INC-2007095375

PATIENT
  Sex: Male
  Weight: 3 kg

DRUGS (2)
  1. ZOLOFT [Suspect]
     Indication: POSTPARTUM DEPRESSION
     Dosage: 100 MG, 1X/DAY
     Route: 064
     Dates: start: 20040901
  2. ZOLOFT [Suspect]
     Indication: ANXIETY

REACTIONS (34)
  - DYSPNOEA [None]
  - GASTROOESOPHAGEAL REFLUX DISEASE [None]
  - ASPIRATION TRACHEAL [None]
  - PULMONARY OEDEMA [None]
  - DIARRHOEA [None]
  - BLOOD CREATININE INCREASED [None]
  - DEAFNESS [None]
  - WEIGHT GAIN POOR [None]
  - BACTERAEMIA [None]
  - BLOOD POTASSIUM INCREASED [None]
  - FAILURE TO THRIVE [None]
  - WHITE BLOOD CELL COUNT INCREASED [None]
  - FINE MOTOR DELAY [None]
  - PLEURAL EFFUSION [None]
  - ATRIAL FIBRILLATION [None]
  - DIGEORGE'S SYNDROME [None]
  - BLOOD PH INCREASED [None]
  - FOETAL EXPOSURE DURING PREGNANCY [None]
  - LARYNGEAL STENOSIS [None]
  - CAESAREAN SECTION [None]
  - STAPHYLOCOCCAL INFECTION [None]
  - STRIDOR [None]
  - PLATELET COUNT INCREASED [None]
  - FALLOT'S TETRALOGY [None]
  - VOCAL CORD DISORDER [None]
  - SPEECH DISORDER [None]
  - NEONATAL RESPIRATORY DISTRESS SYNDROME [None]
  - CARBON DIOXIDE INCREASED [None]
  - BLOOD CALCIUM DECREASED [None]
  - RED BLOOD CELL COUNT INCREASED [None]
  - DEVELOPMENTAL DELAY [None]
  - FRUSTRATION [None]
  - HYPOCALCAEMIA [None]
  - BLOOD SODIUM DECREASED [None]
